FAERS Safety Report 4455593-5 (Version None)
Quarter: 2004Q3

REPORT INFORMATION
  Report Type: 
  Country: None (occurrence: None)
  Receive Date: 20040922
  Receipt Date: 20040916
  Transmission Date: 20050211
  Serious: Yes (Hospitalization)
  Sender: FDA-Public Use
  Company Number: 200413441FR

PATIENT
  Age: 79 Year
  Sex: Female
  Weight: 43 kg

DRUGS (3)
  1. LOVENOX [Suspect]
     Indication: THROMBOSIS
     Route: 058
     Dates: start: 20040114, end: 20040202
  2. NIZORAL [Suspect]
     Route: 048
     Dates: start: 20040112, end: 20040122
  3. ZYLORIC [Suspect]
     Route: 048
     Dates: start: 20040108, end: 20040122

REACTIONS (4)
  - BIOPSY BONE MARROW ABNORMAL [None]
  - NEUTROPENIA [None]
  - PROMYELOCYTE COUNT DECREASED [None]
  - WHITE BLOOD CELL COUNT DECREASED [None]
